FAERS Safety Report 6987845-9 (Version None)
Quarter: 2010Q3

REPORT INFORMATION
  Report Type: 
  Country: None (occurrence: None)
  Receive Date: 20100916
  Receipt Date: 20100907
  Transmission Date: 20110219
  Serious: Yes (Hospitalization)
  Sender: FDA-Public Use
  Company Number: JP-ASTRAZENECA-2010SE37085

PATIENT
  Age: 74 Year
  Sex: Male

DRUGS (2)
  1. BLOPRESS [Suspect]
     Indication: PRODUCT USED FOR UNKNOWN INDICATION
     Route: 048
  2. BLOPRESS PLUS [Suspect]
     Indication: PRODUCT USED FOR UNKNOWN INDICATION
     Route: 048

REACTIONS (7)
  - CONSTIPATION [None]
  - INFLAMMATION [None]
  - LIVER FUNCTION TEST ABNORMAL [None]
  - PNEUMONIA [None]
  - URINARY RETENTION [None]
  - VENTRICULAR TACHYCARDIA [None]
  - WEIGHT DECREASED [None]
